FAERS Safety Report 8003710-2 (Version None)
Quarter: 2011Q4

REPORT INFORMATION
  Report Type: 
  Country: None (occurrence: None)
  Receive Date: 20111222
  Receipt Date: 20111219
  Transmission Date: 20120403
  Serious: Yes (Hospitalization)
  Sender: FDA-Public Use
  Company Number: US-US-EMD SERONO, INC.-7043901

PATIENT
  Sex: Female

DRUGS (4)
  1. IBUPROFEN [Concomitant]
     Indication: PREMEDICATION
  2. REBIF [Suspect]
     Route: 058
     Dates: start: 20110225
  3. REBIF [Suspect]
     Indication: PRODUCT USED FOR UNKNOWN INDICATION
     Route: 058
     Dates: start: 20080223, end: 20101115
  4. REBIF [Suspect]
     Route: 058
     Dates: start: 20101205, end: 20101208

REACTIONS (5)
  - KNEE ARTHROPLASTY [None]
  - INFLUENZA LIKE ILLNESS [None]
  - BUNION OPERATION [None]
  - CHILLS [None]
  - ARTHRODESIS [None]
